FAERS Safety Report 5944594-3 (Version None)
Quarter: 2008Q4

REPORT INFORMATION
  Report Type: 
  Country: None (occurrence: None)
  Receive Date: 20081107
  Receipt Date: 20081030
  Transmission Date: 20090506
  Serious: Yes (Hospitalization)
  Sender: FDA-Public Use
  Company Number: CH-WYE-H06727208

PATIENT
  Age: 55 Year
  Sex: Male

DRUGS (4)
  1. AMIODARONE HCL [Suspect]
     Route: 048
  2. LEVOTHYROXINE SODIUM [Interacting]
     Dosage: UNKNOWN
     Route: 048
  3. MARCUMAR [Interacting]
     Indication: ATRIAL FIBRILLATION
     Dosage: UNKNOWN
     Route: 048
     Dates: end: 20081003
  4. MARCUMAR [Interacting]
     Indication: ATRIAL FLUTTER

REACTIONS (2)
  - DRUG INTERACTION [None]
  - SUBARACHNOID HAEMORRHAGE [None]
